FAERS Safety Report 14823711 (Version 2)
Quarter: 2018Q2

REPORT INFORMATION
  Report Type: Spontaneous
  Country: GB (occurrence: DE)
  Receive Date: 20180428
  Receipt Date: 20180515
  Transmission Date: 20180711
  Serious: Yes (Hospitalization, Other)
  Sender: FDA-Public Use
  Company Number: GB-AUROBINDO-AUR-APL-2018-022809

PATIENT
  Age: 79 Year
  Sex: Female
  Weight: 67 kg

DRUGS (34)
  1. DIAZEPAM. [Suspect]
     Active Substance: DIAZEPAM
     Route: 042
     Dates: start: 20000220, end: 20000220
  2. LASIX [Suspect]
     Active Substance: FUROSEMIDE
     Indication: CORONARY ARTERY DISEASE
     Dosage: 40 MILLIGRAM, ONCE A DAY
     Route: 048
     Dates: start: 20000225
  3. ISOSORBIDE DINITRATE. [Suspect]
     Active Substance: ISOSORBIDE DINITRATE
     Route: 048
     Dates: start: 20000130, end: 20000218
  4. TEGRETAL [Suspect]
     Active Substance: CARBAMAZEPINE
     Indication: SEIZURE
     Dosage: 600 MG (DAILY DOSE), , ORAL
     Route: 048
     Dates: start: 20000125
  5. FUROSEMID                          /00032601/ [Suspect]
     Active Substance: FUROSEMIDE
     Indication: OEDEMA
     Dosage: 40 MG (DAILY DOSE), , ORAL
     Route: 048
  6. TRAMAL [Suspect]
     Active Substance: TRAMADOL
     Dosage: DOSE UNIT: 20 DROP  EAR EYE NOSE DROP SOLUTION ()
     Route: 048
     Dates: start: 20000218, end: 20000218
  7. FURORESE                           /00032601/ [Suspect]
     Active Substance: FUROSEMIDE
     Indication: OEDEMA
     Dosage: UNK
     Route: 048
     Dates: start: 20000218
  8. DIAZEPAM. [Suspect]
     Active Substance: DIAZEPAM
     Indication: SEIZURE
     Route: 042
     Dates: start: 20000225, end: 20000225
  9. LUMINAL                            /00023201/ [Suspect]
     Active Substance: PHENOBARBITAL SODIUM
     Indication: SEIZURE
     Dosage: UNK
     Route: 030
     Dates: start: 20000225
  10. TRAMAL [Suspect]
     Active Substance: TRAMADOL
     Indication: PAIN
     Dosage: UNK
     Route: 048
     Dates: start: 20000219
  11. TRAMAL [Suspect]
     Active Substance: TRAMADOL
     Dosage: DOSE UNIT: 20 DROP ()
     Route: 048
     Dates: start: 20000223, end: 20000223
  12. BEN-U-RON [Concomitant]
     Indication: PAIN
     Route: 054
     Dates: start: 20000226, end: 20000226
  13. AMLODIPINE [Suspect]
     Active Substance: AMLODIPINE BESYLATE
     Dosage: 5 MG (DAILY DOSE), , ORAL
     Route: 048
  14. RANITIC [Suspect]
     Active Substance: RANITIDINE HYDROCHLORIDE
     Indication: PROPHYLAXIS
     Route: 048
     Dates: start: 20000218, end: 20000224
  15. RIVOTRIL [Suspect]
     Active Substance: CLONAZEPAM
     Indication: SEIZURE
     Dosage: 1 MILLIGRAM, ONCE A DAY
     Route: 042
     Dates: start: 20000224
  16. PHENHYDAN                          /00017401/ [Suspect]
     Active Substance: PHENYTOIN
     Dosage: UNK
     Route: 048
     Dates: start: 20000226, end: 20000227
  17. ZANTAC [Suspect]
     Active Substance: RANITIDINE HYDROCHLORIDE
     Indication: PROPHYLAXIS
     Dosage: DOSE UNIT: 300 MG (1)
     Route: 048
     Dates: start: 20000225, end: 20000227
  18. NORVASC [Concomitant]
     Active Substance: AMLODIPINE BESYLATE
     Indication: CORONARY ARTERY DISEASE
     Dosage: (1)
     Route: 048
     Dates: start: 20000130, end: 20000227
  19. RIVOTRIL [Suspect]
     Active Substance: CLONAZEPAM
     Route: 042
     Dates: start: 20000224, end: 20000224
  20. AMLODIPINE [Suspect]
     Active Substance: AMLODIPINE BESYLATE
     Indication: CORONARY ARTERY DISEASE
     Dosage: 5 MG (DAILY DOSE), , ORAL
     Route: 048
  21. DIAZEPAM. [Suspect]
     Active Substance: DIAZEPAM
     Indication: SEIZURE
     Dosage: 5 MILLIGRAM, ONCE A DAY
     Route: 042
     Dates: start: 20000218
  22. ISMO [Suspect]
     Active Substance: ISOSORBIDE MONONITRATE
     Indication: CORONARY ARTERY DISEASE
     Dosage: UNK
     Route: 048
     Dates: start: 20000225
  23. TRAMAL [Suspect]
     Active Substance: TRAMADOL
     Dosage: DOSE UNIT: 20 DROP ()
     Route: 048
     Dates: start: 20000221, end: 20000221
  24. ASPIRIN TABLETS [Suspect]
     Active Substance: ASPIRIN
     Indication: CORONARY ARTERY DISEASE
     Dosage: 100 MG (DAILY DOSE), , ORAL
     Route: 048
  25. AMLODIPINE [Suspect]
     Active Substance: AMLODIPINE BESYLATE
     Route: 048
     Dates: start: 20000130, end: 20000220
  26. DIAZEPAM. [Suspect]
     Active Substance: DIAZEPAM
     Route: 042
     Dates: start: 20000218, end: 20000218
  27. RANITIC [Suspect]
     Active Substance: RANITIDINE HYDROCHLORIDE
     Indication: GASTRIC ULCER
     Dosage: 300 MG (DAILY DOSE), , ORAL
     Route: 048
     Dates: start: 20000218
  28. ISMO [Suspect]
     Active Substance: ISOSORBIDE MONONITRATE
     Dosage: DOSE UNIT: 20 MG (1)
     Route: 048
     Dates: start: 20000225, end: 20000227
  29. ISOSORBIDE DINITRATE. [Suspect]
     Active Substance: ISOSORBIDE DINITRATE
     Indication: CORONARY ARTERY DISEASE
     Dosage: 1 DF (DAILY DOSE), , ORAL
     Route: 048
  30. EUSAPRIM                           /00086101/ [Suspect]
     Active Substance: SULFAMETHOXAZOLE\TRIMETHOPRIM
     Indication: CYSTITIS
     Dosage: 2 DF (DAILY DOSE), , ORAL
     Route: 048
     Dates: start: 20000226
  31. PHENHYDAN                          /00017401/ [Suspect]
     Active Substance: PHENYTOIN
     Indication: SEIZURE
     Dosage: UNK
     Route: 042
     Dates: start: 20000225
  32. CORANGIN [Suspect]
     Active Substance: ISOSORBIDE MONONITRATE
     Indication: CORONARY ARTERY DISEASE
     Dosage: 1 DF (DAILY DOSE), , ORAL
     Route: 048
     Dates: start: 20000218
  33. TEGRETAL [Suspect]
     Active Substance: CARBAMAZEPINE
     Dosage: DOSE UNIT: 200 MG
     Route: 048
     Dates: start: 20000125, end: 20000224
  34. ZANTAC [Suspect]
     Active Substance: RANITIDINE HYDROCHLORIDE
     Indication: GASTRIC ULCER
     Dosage: UNK
     Route: 048
     Dates: start: 20000225

REACTIONS (6)
  - Rash erythematous [Recovered/Resolved]
  - Mouth ulceration [Recovered/Resolved]
  - Pruritus [Recovered/Resolved]
  - Conjunctivitis [Recovered/Resolved]
  - Genital erosion [Recovered/Resolved]
  - Stevens-Johnson syndrome [Recovered/Resolved]

NARRATIVE: CASE EVENT DATE: 20000227
